FAERS Safety Report 21805117 (Version 1)
Quarter: 2023Q1

REPORT INFORMATION
  Report Type: Spontaneous
  Country: IT (occurrence: IT)
  Receive Date: 20230102
  Receipt Date: 20230102
  Transmission Date: 20230417
  Serious: Yes (Other)
  Sender: FDA-Public Use
  Company Number: None

PATIENT
  Age: 71 Year
  Sex: Female

DRUGS (4)
  1. BETAMETHASONE [Suspect]
     Active Substance: BETAMETHASONE
     Dosage: 1 MG, QD
     Dates: start: 20221125, end: 20221128
  2. ARIXTRA [Suspect]
     Active Substance: FONDAPARINUX SODIUM
     Indication: Deep vein thrombosis
     Dosage: 7.5 MG, QD
     Dates: start: 20221017, end: 20221125
  3. ENOXAPARIN SODIUM [Suspect]
     Active Substance: ENOXAPARIN SODIUM
     Indication: Deep vein thrombosis
     Dosage: 12000 IU
     Dates: start: 20221125, end: 20221128
  4. AUGMENTIN [Concomitant]
     Active Substance: AMOXICILLIN\CLAVULANATE POTASSIUM
     Dosage: 2 G, QD
     Dates: start: 20221125, end: 20221128

REACTIONS (2)
  - Anaemia [Recovering/Resolving]
  - Haematoma [Recovering/Resolving]

NARRATIVE: CASE EVENT DATE: 20221125
